FAERS Safety Report 7290802-9 (Version None)
Quarter: 2011Q1

REPORT INFORMATION
  Report Type: 
  Country: None (occurrence: None)
  Receive Date: 20110214
  Receipt Date: 20110204
  Transmission Date: 20110831
  Serious: Yes (Hospitalization)
  Sender: FDA-Public Use
  Company Number: JP-ROCHE-758914

PATIENT
  Age: 85 Year
  Sex: Male

DRUGS (2)
  1. XELODA [Suspect]
     Dosage: XELODA 300
     Route: 048
     Dates: start: 20100701
  2. XELODA [Suspect]
     Dosage: DOSAGE UNCERTAIN
     Route: 048

REACTIONS (6)
  - JAUNDICE [None]
  - ULCER HAEMORRHAGE [None]
  - HEPATIC FUNCTION ABNORMAL [None]
  - ALANINE AMINOTRANSFERASE INCREASED [None]
  - ASPARTATE AMINOTRANSFERASE INCREASED [None]
  - PLATELET COUNT DECREASED [None]
